FAERS Safety Report 16729975 (Version 1)
Quarter: 2019Q3

REPORT INFORMATION
  Report Type: Spontaneous
  Country: FR (occurrence: FR)
  Receive Date: 20190822
  Receipt Date: 20190822
  Transmission Date: 20191005
  Serious: Yes (Hospitalization)
  Sender: FDA-Public Use
  Company Number: FR-TEVA-2019-FR-1094526

PATIENT
  Age: 82 Year
  Sex: Female
  Weight: 79 kg

DRUGS (7)
  1. THYROZOL [Suspect]
     Active Substance: METHIMAZOLE
     Indication: HYPERTHYROIDISM
     Dosage: NOT INFORMED, 10  MG
     Route: 048
     Dates: start: 20190502
  2. DULOXETINE MYLAN [Suspect]
     Active Substance: DULOXETINE
     Indication: DEPRESSION
     Dosage: 60 MG
     Route: 048
     Dates: start: 2016, end: 20190410
  3. NEO-MERCAZOLE 5 MG, COMPRIME [Suspect]
     Active Substance: CARBIMAZOLE
     Indication: HYPERTHYROIDISM
     Dosage: 10 MG
     Route: 048
     Dates: start: 201902, end: 20190410
  4. PREGABALIN. [Suspect]
     Active Substance: PREGABALIN
     Indication: PAIN
     Dosage: 100 MG
     Route: 048
     Dates: start: 2016, end: 20190506
  5. DOLIPRANEORO 500 MG, COMPRIME ORODISPERSIBLE [Suspect]
     Active Substance: ACETAMINOPHEN
     Indication: PAIN
     Dosage: 4000 MG
     Route: 048
     Dates: start: 2016, end: 20190410
  6. ELIQUIS [Suspect]
     Active Substance: APIXABAN
     Indication: ATRIAL FIBRILLATION
     Dosage: 10 MG
     Route: 048
     Dates: start: 201902, end: 20190410
  7. CEFTRIAXONE MYLAN [Suspect]
     Active Substance: CEFTRIAXONE
     Indication: LUNG INFECTION
     Dosage: 1 G
     Route: 058
     Dates: start: 20190328, end: 20190408

REACTIONS (1)
  - Liver function test abnormal [Not Recovered/Not Resolved]

NARRATIVE: CASE EVENT DATE: 20190410
